FAERS Safety Report 12431612 (Version 3)
Quarter: 2016Q3

REPORT INFORMATION
  Report Type: Spontaneous
  Country: JP (occurrence: JP)
  Receive Date: 20160603
  Receipt Date: 20160714
  Transmission Date: 20161109
  Serious: Yes (Hospitalization)
  Sender: FDA-Public Use
  Company Number: JP-AMGEN-JPNSP2016070331

PATIENT
  Age: 85 Year
  Sex: Female
  Weight: 37 kg

DRUGS (5)
  1. PRALIA [Suspect]
     Active Substance: DENOSUMAB
     Indication: OSTEOPOROSIS
     Dosage: UNK
     Route: 065
     Dates: start: 20160112
  2. DENOTAS [Concomitant]
     Active Substance: CALCIUM CARBONATE\CHOLECALCIFEROL\MAGNESIUM CARBONATE
     Dosage: UNK
     Route: 048
  3. LOXOPROFEN SODIUM [Concomitant]
     Active Substance: LOXOPROFEN SODIUM
     Indication: PERIARTHRITIS
     Dosage: UNK
     Route: 062
     Dates: start: 20150216
  4. EDIROL [Concomitant]
     Active Substance: ELDECALCITOL
     Dosage: UNK
  5. NORSPAN [Concomitant]
     Active Substance: BUPRENORPHINE
     Indication: PERIARTHRITIS
     Dosage: UNK
     Route: 062
     Dates: start: 20150216

REACTIONS (1)
  - Oral infection [Recovering/Resolving]

NARRATIVE: CASE EVENT DATE: 20160520
